FAERS Safety Report 11331290 (Version 2)
Quarter: 2015Q4

REPORT INFORMATION
  Report Type: Spontaneous
  Country: US (occurrence: US)
  Receive Date: 20150803
  Receipt Date: 20151015
  Transmission Date: 20160304
  Serious: No
  Sender: FDA-Public Use
  Company Number: GXBR2015US001667

PATIENT
  Sex: Female

DRUGS (1)
  1. ALCLOMETASONE [Suspect]
     Active Substance: ALCLOMETASONE
     Indication: ARTHROPOD BITE
     Dosage: UNK DF, BID
     Route: 061
     Dates: start: 20150706

REACTIONS (1)
  - Application site discolouration [Recovered/Resolved]
